FAERS Safety Report 8911655 (Version 2)
Quarter: 2012Q4

REPORT INFORMATION
  Report Type: 
  Country: SE (occurrence: SE)
  Receive Date: 20121116
  Receipt Date: 20121129
  Transmission Date: 20130627
  Serious: Yes (Hospitalization)
  Sender: FDA-Public Use
  Company Number: SE-PFIZER INC-2012283136

PATIENT
  Age: 28 Year
  Sex: Female
  Weight: 105 kg

DRUGS (11)
  1. GENOTROPIN [Suspect]
     Indication: GROWTH HORMONE DEFICIENCY
     Dosage: 1.2 mg, 1x/day, 7 injections/week
     Route: 058
     Dates: start: 20030513
  2. DESMOPRESSIN [Concomitant]
     Indication: ADH DECREASED
     Dosage: UNK
     Dates: start: 19971130
  3. ESTRADIOL [Concomitant]
     Indication: LUTEINISING HORMONE DEFICIENCY
     Dosage: UNK
     Dates: start: 19971130
  4. ESTRADIOL [Concomitant]
     Indication: FOLLICLE-STIMULATING HORMONE DEFICIENCY
  5. ESTRADIOL [Concomitant]
     Indication: OVARIAN DISORDER
  6. ESTRADIOL [Concomitant]
     Indication: HYPOGONADISM
  7. CORTONE [Concomitant]
     Indication: ACTH DECREASED
     Dosage: UNK
     Dates: start: 19971130
  8. LEVAXIN [Concomitant]
     Indication: TSH DECREASED
     Dosage: UNK
     Dates: start: 19971130
  9. LEVAXIN [Concomitant]
     Indication: PRIMARY HYPOTHYROIDISM
  10. SANDOSTATIN LAR [Concomitant]
     Indication: WEIGHT LOSS
     Dosage: UNK
     Dates: start: 20060419
  11. REDUCTIL [Concomitant]
     Indication: OBESITY
     Dosage: UNK
     Dates: start: 20070501

REACTIONS (1)
  - Blood cortisol decreased [Unknown]
